FAERS Safety Report 7446091-5 (Version None)
Quarter: 2011Q2

REPORT INFORMATION
  Report Type: 
  Country: None (occurrence: None)
  Receive Date: 20110429
  Receipt Date: 20110422
  Transmission Date: 20111010
  Serious: Yes (Other)
  Sender: FDA-Public Use
  Company Number: CN-US-EMD SERONO, INC.-7055808

PATIENT
  Age: 30 Year
  Sex: Female

DRUGS (2)
  1. SAIZEN [Suspect]
     Indication: ENDOMETRIAL DISORDER
     Route: 058
     Dates: start: 20110401, end: 20110401
  2. GONAL-F [Concomitant]
     Indication: ASSISTED FERTILISATION
     Dates: start: 20110301

REACTIONS (2)
  - BLOOD PROLACTIN INCREASED [None]
  - OFF LABEL USE [None]
